FAERS Safety Report 10448581 (Version 2)
Quarter: 2014Q3

REPORT INFORMATION
  Report Type: Report from Study
  Country: AR (occurrence: AR)
  Receive Date: 20140911
  Receipt Date: 20140911
  Transmission Date: 20150326
  Serious: Yes (Death)
  Sender: FDA-Public Use
  Company Number: AR-BRISTOL-MYERS SQUIBB COMPANY-19868652

PATIENT
  Age: 52 Year
  Sex: Male

DRUGS (1)
  1. YERVOY [Suspect]
     Active Substance: IPILIMUMAB
     Indication: SKIN CANCER
     Dosage: NO OF UNITS:4
     Route: 042
     Dates: start: 20130326

REACTIONS (1)
  - Death [Fatal]

NARRATIVE: CASE EVENT DATE: 20130927
